FAERS Safety Report 9017047 (Version 1)
Quarter: 2013Q1

REPORT INFORMATION
  Report Type: Spontaneous
  Country: AU (occurrence: AU)
  Receive Date: 20130117
  Receipt Date: 20130117
  Transmission Date: 20140127
  Serious: Yes (Death)
  Sender: FDA-Public Use
  Company Number: PHHY2013AU004046

PATIENT
  Sex: 0

DRUGS (3)
  1. TEGRETOL [Suspect]
  2. VALPROIC ACID [Suspect]
  3. TOPIRAMATE [Suspect]

REACTIONS (2)
  - Death neonatal [Fatal]
  - Foetal exposure during pregnancy [Unknown]
